FAERS Safety Report 26152333 (Version 2)
Quarter: 2025Q4

REPORT INFORMATION
  Report Type: Report from Study
  Country: US (occurrence: US)
  Receive Date: 20251214
  Receipt Date: 20251218
  Transmission Date: 20260118
  Serious: Yes (Other)
  Sender: ABBVIE
  Company Number: US-ABBVIE-6584919

PATIENT
  Sex: Female

DRUGS (1)
  1. HUMIRA [Suspect]
     Active Substance: ADALIMUMAB
     Indication: Product used for unknown indication
     Route: 058
     Dates: start: 1999, end: 2022

REACTIONS (4)
  - Large intestinal stenosis [Recovering/Resolving]
  - Abdominal pain [Unknown]
  - Therapeutic product effect decreased [Unknown]
  - Hip surgery [Unknown]
